FAERS Safety Report 5325323-3 (Version None)
Quarter: 2007Q2

REPORT INFORMATION
  Report Type: 
  Country: None (occurrence: None)
  Receive Date: 20070509
  Receipt Date: 20070427
  Transmission Date: 20071010
  Serious: Yes (Other)
  Sender: FDA-Public Use
  Company Number: GXKR2007GB03884

PATIENT
  Sex: Male

DRUGS (2)
  1. INDOMETHACIN [Suspect]
     Dosage: 50 MG, TID, ORAL
     Route: 048
     Dates: start: 20070326, end: 20070326
  2. INDOMETHACIN [Suspect]

REACTIONS (4)
  - BALANCE DISORDER [None]
  - DIZZINESS [None]
  - MALAISE [None]
  - VITREOUS FLOATERS [None]
